FAERS Safety Report 5492239-1 (Version None)
Quarter: 2007Q4

REPORT INFORMATION
  Report Type: 
  Country: None (occurrence: None)
  Receive Date: 20071022
  Receipt Date: 20071011
  Transmission Date: 20080405
  Serious: Yes (Hospitalization, Disabling)
  Sender: FDA-Public Use
  Company Number: US-ROCHE-524656

PATIENT
  Age: 56 Year
  Sex: Female
  Weight: 51.7 kg

DRUGS (1)
  1. BONIVA [Suspect]
     Indication: OSTEOPOROSIS
     Dosage: DOSE FORM: PILL. THE PATIENT RECEIVED A TOTAL OF 3 DOSES.
     Route: 065
     Dates: start: 20070317, end: 20070601

REACTIONS (1)
  - OSTEOMYELITIS [None]
